FAERS Safety Report 9331423 (Version 2)
Quarter: 2013Q3

REPORT INFORMATION
  Report Type: Spontaneous
  Country: US (occurrence: US)
  Receive Date: 20130605
  Receipt Date: 20130809
  Transmission Date: 20140515
  Serious: Yes (Other)
  Sender: FDA-Public Use
  Company Number: US-BAYER-2013-068366

PATIENT
  Age: 45 Year
  Sex: Female

DRUGS (4)
  1. YAZ [Suspect]
     Dosage: UNK
     Dates: start: 20080716, end: 20081120
  2. YASMIN [Suspect]
  3. ENBREL [Concomitant]
     Indication: ANKYLOSING SPONDYLITIS
  4. CLARITIN [Concomitant]

REACTIONS (8)
  - Deep vein thrombosis [Recovering/Resolving]
  - Pain [Recovering/Resolving]
  - Injury [Recovering/Resolving]
  - General physical health deterioration [Recovering/Resolving]
  - Emotional distress [None]
  - Anxiety [None]
  - Anhedonia [None]
  - Pain [None]
